FAERS Safety Report 21928853 (Version 1)
Quarter: 2023Q1

REPORT INFORMATION
  Report Type: Spontaneous
  Country: US (occurrence: US)
  Receive Date: 20230131
  Receipt Date: 20230131
  Transmission Date: 20230418
  Serious: Yes (Disabling, Other)
  Sender: FDA-Public Use
  Company Number: US-TEVA-2023-US-2850531

PATIENT
  Age: 50 Year
  Sex: Female
  Weight: 92.9 kg

DRUGS (12)
  1. DOCETAXEL [Suspect]
     Active Substance: DOCETAXEL
     Indication: Breast cancer female
     Dosage: NUMBER OF CYCLE - 06, FREQUENCY - EVERY THREE WEEKS AND WAS TREATED WITH 145 MILLIGRAMS?DOCETAXEL 75
     Route: 042
     Dates: start: 20151118, end: 20160302
  2. CARBOPLATIN [Suspect]
     Active Substance: CARBOPLATIN
     Indication: Breast cancer female
     Dosage: NUMBER OF CYCLE - 06, FREQUENCY - EVERY THREE WEEKS ?CARBOPLATIN AUC OF 6,?18-NOV-2015;09-DEC-2015;3
     Route: 042
     Dates: start: 20151118, end: 20160302
  3. DOCETAXEL [Suspect]
     Active Substance: DOCETAXEL
     Indication: Breast cancer female
     Dosage: NUMBER OF CYCLE - 06, FREQUENCY - EVERY THREE WEEKS AND WAS TREATED WITH 145 MILLIGRAMS, DOCETAXEL 7
     Route: 042
     Dates: start: 20151118, end: 20160302
  4. HERCEPTIN [Suspect]
     Active Substance: TRASTUZUMAB
     Indication: Breast cancer female
     Dosage: NUMBER OF CYCLE - 06, FREQUENCY - EVERY THREE WEEKS TRASTUZUMAB 8 MG/KG  ON DAY 1 OF CYCLE1;?6 MG/KG
     Route: 042
     Dates: start: 20151118, end: 20160302
  5. HERCEPTIN [Suspect]
     Active Substance: TRASTUZUMAB
     Dosage: 1 YEAR MAINTENANCE CYCLE; 11 CYCLES?TRASTUZUMAB 6 MG/KG
     Route: 042
     Dates: start: 20160518
  6. PERJETA [Suspect]
     Active Substance: PERTUZUMAB
     Indication: Breast cancer female
     Dosage: NUMBER OF CYCLE -06, FREQUENCY-EVERY THREE WEEKS PERTUZUMAB 840 MG FOR CYCLE 1;PERTUZUMAB 420 MG FOR
     Route: 042
     Dates: start: 20151118, end: 20160302
  7. ZANTAC [Concomitant]
     Active Substance: RANITIDINE HYDROCHLORIDE
     Indication: Gastrooesophageal reflux disease
     Route: 065
     Dates: start: 2009, end: 2018
  8. VITAMINS [Concomitant]
     Active Substance: VITAMINS
     Indication: Product used for unknown indication
     Route: 065
  9. DIAZEPAM\ISOPROPAMIDE IODIDE [Concomitant]
     Active Substance: DIAZEPAM\ISOPROPAMIDE IODIDE
     Indication: Herpes simplex
     Route: 065
  10. LYRICA [Concomitant]
     Active Substance: PREGABALIN
     Indication: Product used for unknown indication
     Route: 065
     Dates: start: 2011
  11. PERCOCET [Concomitant]
     Active Substance: ACETAMINOPHEN\OXYCODONE HYDROCHLORIDE
     Indication: Product used for unknown indication
     Route: 065
  12. ATIVAN [Concomitant]
     Active Substance: LORAZEPAM
     Indication: Product used for unknown indication
     Route: 065

REACTIONS (24)
  - Alopecia areata [Not Recovered/Not Resolved]
  - Madarosis [Not Recovered/Not Resolved]
  - Neuropathy peripheral [Not Recovered/Not Resolved]
  - Hair texture abnormal [Not Recovered/Not Resolved]
  - Hair colour changes [Not Recovered/Not Resolved]
  - Peripheral swelling [Not Recovered/Not Resolved]
  - Hypoaesthesia [Not Recovered/Not Resolved]
  - Paraesthesia [Not Recovered/Not Resolved]
  - Nausea [Unknown]
  - Agitation [Unknown]
  - Dizziness [Unknown]
  - Insomnia [Unknown]
  - Anxiety [Unknown]
  - Constipation [Unknown]
  - Night sweats [Unknown]
  - Diarrhoea [Unknown]
  - Headache [Unknown]
  - Dyspnoea exertional [Unknown]
  - Onychomadesis [Recovering/Resolving]
  - Anaemia [Recovering/Resolving]
  - Fatigue [Recovered/Resolved]
  - Feeling jittery [Recovered/Resolved]
  - Hot flush [Recovered/Resolved]
  - Rash [Recovered/Resolved]

NARRATIVE: CASE EVENT DATE: 20150101
